FAERS Safety Report 10213531 (Version 1)
Quarter: 2014Q2

REPORT INFORMATION
  Report Type: Spontaneous
  Country: FI (occurrence: FI)
  Receive Date: 20140603
  Receipt Date: 20140603
  Transmission Date: 20141212
  Serious: Yes (Disabling, Congenital Anomaly, Other)
  Sender: FDA-Public Use
  Company Number: FI-JNJFOC-20140514800

PATIENT
  Sex: Male
  Weight: 2.93 kg

DRUGS (4)
  1. TOPIMAX [Suspect]
     Indication: EPILEPSY
     Dosage: 50MG 50MG OF TOPIRAMATE A DAY
     Route: 064
     Dates: start: 20111115
  2. HYDROCORTISON [Suspect]
     Indication: PRODUCT USED FOR UNKNOWN INDICATION
     Route: 064
  3. STRATTERA [Suspect]
     Indication: PRODUCT USED FOR UNKNOWN INDICATION
     Route: 064
  4. FOLVITE [Concomitant]
     Indication: PRODUCT USED FOR UNKNOWN INDICATION
     Route: 064

REACTIONS (2)
  - Cleft lip [Unknown]
  - Foetal exposure during pregnancy [Recovered/Resolved]
